FAERS Safety Report 6115149-5 (Version None)
Quarter: 2009Q1

REPORT INFORMATION
  Report Type: 
  Country: None (occurrence: None)
  Receive Date: 20090313
  Receipt Date: 20080422
  Transmission Date: 20090719
  Serious: Yes (Hospitalization)
  Sender: FDA-Public Use
  Company Number: DE-PFIZER INC-2008037096

PATIENT

DRUGS (6)
  1. SUNITINIB MALATE [Suspect]
     Indication: METASTATIC RENAL CELL CARCINOMA
     Dosage: 25 MG
     Route: 048
     Dates: start: 20071114
  2. MARCUMAR [Concomitant]
     Dates: end: 20080101
  3. MORPHINE [Concomitant]
     Dates: start: 20070101
  4. METAMIZOLE [Concomitant]
     Dates: start: 20070101, end: 20071101
  5. OMEPRAZOLE [Concomitant]
     Dates: start: 20070101
  6. IDEOS [Concomitant]
     Dates: start: 20071101, end: 20080101

REACTIONS (4)
  - CONFUSIONAL STATE [None]
  - DYSARTHRIA [None]
  - GAIT DISTURBANCE [None]
  - NAUSEA [None]
